FAERS Safety Report 21512718 (Version 1)
Quarter: 2022Q4

REPORT INFORMATION
  Report Type: Spontaneous
  Country: US (occurrence: None)
  Receive Date: 20221026
  Receipt Date: 20221026
  Transmission Date: 20230113
  Serious: Yes (Hospitalization)
  Sender: FDA-Public Use
  Company Number: None

PATIENT
  Age: 68 Year
  Sex: Female
  Weight: 55.34 kg

DRUGS (11)
  1. LENALIDOMIDE [Suspect]
     Active Substance: LENALIDOMIDE
     Indication: Plasma cell myeloma
     Dosage: OTHER FREQUENCY : QOTHERDAY;?
     Route: 048
  2. ACYCLOVIR [Concomitant]
  3. AMLOPINE [Concomitant]
  4. BENADRYL [Concomitant]
     Active Substance: DIPHENHYDRAMINE HYDROCHLORIDE
  5. CALCIUM 600 + D3 [Concomitant]
  6. DARZALEX [Concomitant]
  7. DOCUSATE SODIUM [Concomitant]
  8. LYSINE [Concomitant]
  9. MONTELUKAST [Concomitant]
  10. ROGAINE [Concomitant]
  11. TYLENOL [Concomitant]

REACTIONS (3)
  - Pneumonia [None]
  - Fatigue [None]
  - Chest pain [None]
